FAERS Safety Report 20990415 (Version 5)
Quarter: 2022Q3

REPORT INFORMATION
  Report Type: Report from Study
  Country: None (occurrence: US)
  Receive Date: 20220622
  Receipt Date: 20220823
  Transmission Date: 20221027
  Serious: Yes (Other)
  Sender: FDA-Public Use
  Company Number: US-AKCEA THERAPEUTICS, INC.-2022IS003185

PATIENT
  Age: 63 Year
  Sex: Male

DRUGS (3)
  1. TEGSEDI [Suspect]
     Active Substance: INOTERSEN SODIUM
     Indication: Hereditary neuropathic amyloidosis
     Route: 058
     Dates: start: 20220324
  2. DEVICE [Suspect]
     Active Substance: DEVICE
  3. TEGSEDI [Suspect]
     Active Substance: INOTERSEN SODIUM
     Route: 058
     Dates: start: 20220330

REACTIONS (11)
  - Platelet count decreased [Unknown]
  - Urine ketone body present [Unknown]
  - Blood creatine abnormal [Unknown]
  - Protein urine present [Unknown]
  - Urine protein/creatinine ratio abnormal [Unknown]
  - Hypoaesthesia [Unknown]
  - Paraesthesia [Unknown]
  - Disease progression [Unknown]
  - Joint swelling [Unknown]
  - Peripheral swelling [Unknown]
  - Bacterial test positive [Unknown]

NARRATIVE: CASE EVENT DATE: 20220101
